FAERS Safety Report 14287271 (Version 1)
Quarter: 2017Q4

REPORT INFORMATION
  Report Type: Spontaneous
  Country: JP (occurrence: JP)
  Receive Date: 20171214
  Receipt Date: 20171214
  Transmission Date: 20180321
  Serious: Yes (Hospitalization)
  Sender: FDA-Public Use
  Company Number: JP-PFIZER INC-2017531569

PATIENT

DRUGS (3)
  1. VFEND [Suspect]
     Active Substance: VORICONAZOLE
     Indication: BRONCHOPULMONARY ASPERGILLOSIS
     Dosage: 300 MG, DAILY
     Route: 048
     Dates: start: 20171208, end: 20171209
  2. VFEND [Suspect]
     Active Substance: VORICONAZOLE
     Dosage: 100 MG, 1X/DAY
     Route: 048
     Dates: start: 20171212
  3. VFEND [Suspect]
     Active Substance: VORICONAZOLE
     Dosage: 200 MG, DAILY
     Route: 048
     Dates: start: 20171210, end: 20171211

REACTIONS (4)
  - Eosinophilia [Not Recovered/Not Resolved]
  - Shock [Not Recovered/Not Resolved]
  - Renal disorder [Not Recovered/Not Resolved]
  - Electrocardiogram QT prolonged [Not Recovered/Not Resolved]

NARRATIVE: CASE EVENT DATE: 20171212
